FAERS Safety Report 5623002-6 (Version None)
Quarter: 2008Q1

REPORT INFORMATION
  Report Type: 
  Country: None (occurrence: None)
  Receive Date: 20080207
  Receipt Date: 20080123
  Transmission Date: 20080703
  Serious: No
  Sender: FDA-Public Use
  Company Number: 2008S1000172

PATIENT
  Age: 41 Year
  Sex: Male

DRUGS (11)
  1. ROXANOL [Suspect]
     Indication: PAIN
     Dosage: 10 MG;PRN;PO
     Route: 048
     Dates: start: 20080105, end: 20080115
  2. LITHIUM CARBONATE [Concomitant]
  3. SYNTHROID [Concomitant]
  4. ATIVAN [Concomitant]
  5. BACTRIM [Concomitant]
  6. LEXAPRO [Concomitant]
  7. VALPROIC ACID [Concomitant]
  8. VICODIN [Concomitant]
  9. DILANTIN [Concomitant]
  10. BENEFIBER [Concomitant]
  11. ZOFRAN [Concomitant]

REACTIONS (9)
  - BLISTER [None]
  - FEELING ABNORMAL [None]
  - HALLUCINATION [None]
  - NAUSEA [None]
  - NIGHTMARE [None]
  - OEDEMA PERIPHERAL [None]
  - TREMOR [None]
  - URINE OUTPUT DECREASED [None]
  - VOMITING [None]
